FAERS Safety Report 17422534 (Version 2)
Quarter: 2020Q1

REPORT INFORMATION
  Report Type: Spontaneous
  Country: CA (occurrence: CA)
  Receive Date: 20200215
  Receipt Date: 20200311
  Transmission Date: 20200409
  Serious: Yes (Death)
  Sender: FDA-Public Use
  Company Number: CA-AUROBINDO-AUR-APL-2020-007562

PATIENT
  Age: 70 Year
  Sex: Female

DRUGS (1)
  1. AURO-FLECAINIDE TABLETS [Suspect]
     Active Substance: FLECAINIDE
     Indication: ARRHYTHMIA
     Dosage: 100 MILLIGRAM, TWO TIMES A DAY
     Route: 048

REACTIONS (5)
  - Fatigue [Fatal]
  - Limb discomfort [Fatal]
  - Cardioactive drug level increased [Fatal]
  - Pain in extremity [Fatal]
  - Drug clearance decreased [Fatal]
